FAERS Safety Report 4840631-8 (Version None)
Quarter: 2005Q4

REPORT INFORMATION
  Report Type: 
  Country: None (occurrence: None)
  Receive Date: 20051123
  Receipt Date: 20051109
  Transmission Date: 20060501
  Serious: Yes (Hospitalization)
  Sender: FDA-Public Use
  Company Number: FEI2005-3115

PATIENT
  Age: 30 Year
  Sex: Female

DRUGS (3)
  1. INTRAUTERINE COPPER CONTRACEPTIVE [Suspect]
     Indication: CONTRACEPTION
     Dosage: INTRA-UTERINE
     Route: 015
     Dates: start: 20020701, end: 20051030
  2. FERROUS GLUCONATE [Concomitant]
  3. COUMADIN [Concomitant]

REACTIONS (7)
  - ASCITES [None]
  - ASTHENIA [None]
  - DEHYDRATION [None]
  - DIZZINESS [None]
  - ECTOPIC PREGNANCY [None]
  - INTRA-ABDOMINAL HAEMORRHAGE [None]
  - NAUSEA [None]
